FAERS Safety Report 6357738-9 (Version None)
Quarter: 2009Q3

REPORT INFORMATION
  Report Type: 
  Country: None (occurrence: None)
  Receive Date: 20090911
  Receipt Date: 20090827
  Transmission Date: 20100115
  Serious: Yes (Hospitalization)
  Sender: FDA-Public Use
  Company Number: 8051584

PATIENT
  Age: 44 Year
  Sex: Female

DRUGS (2)
  1. KEPPRA [Suspect]
     Dosage: 3500 MG
     Dates: start: 20020101
  2. RISPERDAL [Concomitant]

REACTIONS (5)
  - AURA [None]
  - EPILEPSY [None]
  - INTENTIONAL SELF-INJURY [None]
  - PSYCHOTIC DISORDER [None]
  - TREMOR [None]
